FAERS Safety Report 4520963-3 (Version None)
Quarter: 2004Q4

REPORT INFORMATION
  Report Type: 
  Country: None (occurrence: None)
  Receive Date: 20041206
  Receipt Date: 20041129
  Transmission Date: 20050328
  Serious: Yes (Death, Hospitalization)
  Sender: FDA-Public Use
  Company Number: DEU-2004-0001112

PATIENT
  Age: 70 Year
  Sex: Male
  Weight: 88 kg

DRUGS (4)
  1. PALLADONE [Suspect]
     Indication: PAIN
     Dosage: 4 MG, BID, ORAL
     Route: 048
     Dates: start: 20040802, end: 20040901
  2. METAMIZOLE [Concomitant]
  3. METOCLOPRAMIDE [Concomitant]
  4. LACTULOSE [Concomitant]

REACTIONS (5)
  - CHRONIC OBSTRUCTIVE AIRWAYS DISEASE EXACERBATED [None]
  - FALL [None]
  - FEMORAL NECK FRACTURE [None]
  - INFECTION [None]
  - PULMONARY ARTERY THROMBOSIS [None]
